FAERS Safety Report 13102906 (Version 1)
Quarter: 2017Q1

REPORT INFORMATION
  Report Type: Spontaneous
  Country: US (occurrence: US)
  Receive Date: 20170110
  Receipt Date: 20170110
  Transmission Date: 20170428
  Serious: No
  Sender: FDA-Public Use
  Company Number: US-ACTELION-A-US2017-148128

PATIENT
  Age: 54 Year
  Sex: Female

DRUGS (12)
  1. JANUVIA [Concomitant]
     Active Substance: SITAGLIPTIN PHOSPHATE
  2. PRAVASTATIN. [Concomitant]
     Active Substance: PRAVASTATIN
  3. NAPROXEN. [Concomitant]
     Active Substance: NAPROXEN
  4. TIZANIDINE. [Concomitant]
     Active Substance: TIZANIDINE
  5. LISINOPRIL. [Concomitant]
     Active Substance: LISINOPRIL
  6. TRIAMCINOLONE [Concomitant]
     Active Substance: TRIAMCINOLONE
  7. GABAPENTIN. [Concomitant]
     Active Substance: GABAPENTIN
  8. DULOXETINE. [Concomitant]
     Active Substance: DULOXETINE
  9. VALCHLOR [Suspect]
     Active Substance: MECHLORETHAMINE
     Indication: MYCOSIS FUNGOIDES
     Dosage: UNK
     Route: 061
     Dates: start: 20161202
  10. METFORMIN [Concomitant]
     Active Substance: METFORMIN HYDROCHLORIDE
  11. LINZESS [Concomitant]
     Active Substance: LINACLOTIDE
  12. TRAZODONE [Concomitant]
     Active Substance: TRAZODONE HYDROCHLORIDE

REACTIONS (2)
  - Application site pruritus [Not Recovered/Not Resolved]
  - Application site erosion [Not Recovered/Not Resolved]
